FAERS Safety Report 8773953 (Version 2)
Quarter: 2012Q4

REPORT INFORMATION
  Report Type: 
  Country: US (occurrence: US)
  Receive Date: 20120907
  Receipt Date: 20120917
  Transmission Date: 20130627
  Serious: No
  Sender: FDA-Public Use
  Company Number: US-PFIZER INC-2012218909

PATIENT
  Age: 77 Year
  Sex: Female
  Weight: 90.7 kg

DRUGS (9)
  1. PREPARATION H [Suspect]
     Indication: OEDEMA PERIPHERAL
     Dosage: UNK, 3x/day
     Dates: start: 20120901
  2. PREPARATION H [Suspect]
     Indication: PRURITUS
  3. HYDROCORTISONE ACETATE [Suspect]
     Indication: OEDEMA PERIPHERAL
     Dosage: UNK
     Dates: start: 201208
  4. HYDROCORTISONE ACETATE [Suspect]
     Indication: PRURITUS
  5. OLIVE OIL [Suspect]
     Indication: OEDEMA PERIPHERAL
     Dosage: UNK
     Dates: start: 201208
  6. OLIVE OIL [Suspect]
     Indication: PRURITUS
  7. ATENOLOL [Concomitant]
     Indication: HYPERTENSION
     Dosage: 50 mg, daily at night
  8. FISH OIL [Concomitant]
     Indication: SUPPLEMENTATION THERAPY
     Dosage: UNK
  9. VITAMINS [Concomitant]
     Indication: SUPPLEMENTATION THERAPY
     Dosage: UNK

REACTIONS (3)
  - Intentional drug misuse [Unknown]
  - Drug ineffective [Unknown]
  - Therapeutic response unexpected [Unknown]
